FAERS Safety Report 5347410-6 (Version None)
Quarter: 2007Q2

REPORT INFORMATION
  Report Type: 
  Country: None (occurrence: None)
  Receive Date: 20070604
  Receipt Date: 20070521
  Transmission Date: 20071010
  Serious: Yes (Other)
  Sender: FDA-Public Use
  Company Number: 2007050315

PATIENT
  Sex: Male

DRUGS (1)
  1. INTRALIPID 20% [Suspect]
     Indication: DRUG USE FOR UNKNOWN INDICATION
     Dosage: INTRAVENOUS (NOT OTHERWIS
     Route: 042
     Dates: start: 20070427

REACTIONS (4)
  - APNOEA [None]
  - BRADYCARDIA [None]
  - ERYTHEMA [None]
  - INFUSION SITE EXTRAVASATION [None]
